FAERS Safety Report 4793843-6 (Version None)
Quarter: 2005Q4

REPORT INFORMATION
  Report Type: 
  Country: None (occurrence: None)
  Receive Date: 20051006
  Receipt Date: 20051006
  Transmission Date: 20060501
  Serious: Yes (Hospitalization)
  Sender: FDA-Public Use
  Company Number: None

PATIENT
  Age: 76 Year
  Weight: 116 kg

DRUGS (2)
  1. WARFARIN 10 MG-1.5 TAB [Suspect]
     Indication: ATRIAL FIBRILLATION
  2. AUGMENTIN '875' [Suspect]
     Indication: SKIN ULCER

REACTIONS (2)
  - INTERNATIONAL NORMALISED RATIO INCREASED [None]
  - SKIN ULCER [None]
